FAERS Safety Report 6274456-6 (Version None)
Quarter: 2009Q3

REPORT INFORMATION
  Report Type: 
  Country: None (occurrence: None)
  Receive Date: 20090720
  Receipt Date: 20090710
  Transmission Date: 20100115
  Serious: Yes (Other)
  Sender: FDA-Public Use
  Company Number: PHHY2009JP22379

PATIENT
  Age: 60 Year
  Sex: Male

DRUGS (5)
  1. NEORAL [Suspect]
     Indication: MYELODYSPLASTIC SYNDROME
     Dosage: 200 MG/DAY
     Route: 048
  2. BASEN [Suspect]
  3. PRIMOBOLAN [Suspect]
  4. SLOW-K [Concomitant]
     Dosage: 3600 MG
     Route: 048
  5. ITRIZOLE [Concomitant]

REACTIONS (1)
  - PNEUMATOSIS INTESTINALIS [None]
